FAERS Safety Report 19690625 (Version 2)
Quarter: 2021Q3

REPORT INFORMATION
  Report Type: Spontaneous
  Country: US (occurrence: US)
  Receive Date: 20210812
  Receipt Date: 20210821
  Transmission Date: 20211014
  Serious: Yes (Hospitalization)
  Sender: FDA-Public Use
  Company Number: US-DRREDDYS-LIT/USA/21/0138774

PATIENT
  Age: 13 Year
  Sex: Male

DRUGS (2)
  1. COLCHICINE. [Suspect]
     Active Substance: COLCHICINE
     Indication: HENOCH-SCHONLEIN PURPURA
     Dosage: HE HAD BEEN RECEIVING TREATMENT WITH COLCHICINE FOR ALMOST 2 YEARS
  2. MYCOPHENOLATE MOFETIL. [Suspect]
     Active Substance: MYCOPHENOLATE MOFETIL
     Indication: HENOCH-SCHONLEIN PURPURA
     Dosage: APPROXIMATELY 6 MONTHS

REACTIONS (2)
  - COVID-19 [Recovered/Resolved]
  - Direct infection transmission [Unknown]
